FAERS Safety Report 12909915 (Version 2)
Quarter: 2016Q4

REPORT INFORMATION
  Report Type: Spontaneous
  Country: US (occurrence: US)
  Receive Date: 20161104
  Receipt Date: 20161123
  Transmission Date: 20170207
  Serious: Yes (Hospitalization)
  Sender: FDA-Public Use
  Company Number: US-ACCORD-045371

PATIENT
  Age: 63 Year
  Sex: Female

DRUGS (7)
  1. RECLAST [Suspect]
     Active Substance: ZOLEDRONIC ACID
     Indication: OSTEOPOROSIS
     Dosage: 5 MG DILUTED IN 100 CC OF NORMAL SALINE AND INFUSED OVER 30 MINUTES
     Route: 042
  2. SODIUM CHLORIDE. [Concomitant]
     Active Substance: SODIUM CHLORIDE
     Indication: OSTEOPOROSIS
     Dosage: 5 MG DILUTED IN 100 CC OF NORMAL SALINE AND INFUSED OVER 30 MINUTES
  3. PREDNISONE. [Concomitant]
     Active Substance: PREDNISONE
     Dosage: LOW-DOSE
  4. METHOTREXATE. [Suspect]
     Active Substance: METHOTREXATE
     Indication: PRODUCT USED FOR UNKNOWN INDICATION
  5. XELJANZ [Suspect]
     Active Substance: TOFACITINIB CITRATE
     Indication: PRODUCT USED FOR UNKNOWN INDICATION
  6. WARFARIN [Concomitant]
     Active Substance: WARFARIN
  7. BUPROPION/BUPROPION HYDROCHLORIDE [Concomitant]

REACTIONS (1)
  - Renal tubular necrosis [Recovering/Resolving]
